FAERS Safety Report 5611446-8 (Version None)
Quarter: 2008Q1

REPORT INFORMATION
  Report Type: 
  Country: None (occurrence: None)
  Receive Date: 20080201
  Receipt Date: 20080123
  Transmission Date: 20080703
  Serious: Yes (Hospitalization)
  Sender: FDA-Public Use
  Company Number: US-ELI_LILLY_AND_COMPANY-US200712001787

PATIENT
  Sex: Male
  Weight: 62.585 kg

DRUGS (10)
  1. HUMATROPE [Suspect]
     Indication: ASTHENIA
     Dosage: 0.2 MG, EACH EVENING
     Route: 058
     Dates: start: 20071011, end: 20070101
  2. MEGACE [Concomitant]
     Indication: WEIGHT DECREASED
     Dosage: 10 ML, UNKNOWN
     Route: 048
     Dates: start: 20071009
  3. TESTOSTERONE [Concomitant]
     Indication: ASTHENIA
     Dosage: 0.5 G, UNKNOWN
     Dates: start: 20071004
  4. ZOLOFT [Concomitant]
     Dosage: UNK, UNKNOWN
  5. SINGULAIR [Concomitant]
     Dosage: UNK, UNKNOWN
  6. NEXIUM [Concomitant]
     Dosage: UNK, UNKNOWN
  7. ADVAIR DISKUS 100/50 [Concomitant]
     Dosage: UNK, UNKNOWN
  8. SPIRIVA [Concomitant]
     Dosage: UNK, UNKNOWN
  9. ALBUTEROL [Concomitant]
     Dosage: UNK, UNKNOWN
  10. SYNTHROID [Concomitant]
     Dosage: UNK, UNKNOWN

REACTIONS (6)
  - ASTHENIA [None]
  - CONFUSIONAL STATE [None]
  - COORDINATION ABNORMAL [None]
  - FALL [None]
  - RESPIRATORY DISORDER [None]
  - WEIGHT DECREASED [None]
